FAERS Safety Report 23883653 (Version 1)
Quarter: 2024Q2

REPORT INFORMATION
  Report Type: Spontaneous
  Country: US (occurrence: None)
  Receive Date: 20240521
  Receipt Date: 20240521
  Transmission Date: 20240715
  Serious: No
  Sender: FDA-Public Use
  Company Number: None

PATIENT
  Sex: Female

DRUGS (3)
  1. DALFAMPRIDINE [Suspect]
     Active Substance: DALFAMPRIDINE
     Indication: Multiple sclerosis
     Route: 048
     Dates: start: 20240403
  2. AMPYRA [Concomitant]
     Active Substance: DALFAMPRIDINE
  3. OCREVUS  INJ 300/10ML [Concomitant]

REACTIONS (2)
  - Hospitalisation [None]
  - Intentional dose omission [None]
